FAERS Safety Report 4593842-3 (Version None)
Quarter: 2005Q1

REPORT INFORMATION
  Report Type: 
  Country: None (occurrence: None)
  Receive Date: 20050301
  Receipt Date: 20050209
  Transmission Date: 20050727
  Serious: Yes (Other)
  Sender: FDA-Public Use
  Company Number: PHNU2005DE00881

PATIENT
  Sex: Male
  Weight: 80 kg

DRUGS (1)
  1. GLEEVEC [Suspect]
     Indication: MASTOCYTOSIS
     Dosage: 400MG/DAY
     Route: 048
     Dates: start: 20040801

REACTIONS (3)
  - BONE DENSITOMETRY [None]
  - BONE DENSITY DECREASED [None]
  - OSTEOPOROSIS [None]
